FAERS Safety Report 5228520-0 (Version None)
Quarter: 2007Q1

REPORT INFORMATION
  Report Type: 
  Country: None (occurrence: None)
  Receive Date: 20070205
  Receipt Date: 20070125
  Transmission Date: 20070707
  Serious: Yes (Hospitalization)
  Sender: FDA-Public Use
  Company Number: FR-AVENTIS-200710329FR

PATIENT
  Age: 71 Year
  Sex: Female

DRUGS (11)
  1. LOVENOX [Suspect]
     Route: 058
     Dates: start: 20070102, end: 20070107
  2. ROCEPHIN [Suspect]
     Dates: start: 20061221, end: 20070103
  3. OFLOCET                            /00731801/ [Concomitant]
     Dates: start: 20061221, end: 20070109
  4. NEXIUM [Concomitant]
     Route: 048
     Dates: start: 20061201, end: 20070109
  5. LEVOTHYROXINE SODIUM [Concomitant]
  6. LEXOMIL [Concomitant]
  7. PREVISCAN                          /00789001/ [Concomitant]
     Dates: start: 20070104
  8. TRAMADOL HCL [Concomitant]
     Dates: start: 20070105
  9. DIFFU K [Concomitant]
     Dates: start: 20070102, end: 20070111
  10. HALDOL [Concomitant]
     Dates: start: 20061228, end: 20070110
  11. SPASFON                            /00934601/ [Concomitant]
     Dates: start: 20061201, end: 20070109

REACTIONS (1)
  - NEUTROPENIA [None]
